FAERS Safety Report 13314848 (Version 2)
Quarter: 2017Q2

REPORT INFORMATION
  Report Type: Spontaneous
  Country: CA (occurrence: CA)
  Receive Date: 20170309
  Receipt Date: 20170502
  Transmission Date: 20170830
  Serious: Yes (Death, Other)
  Sender: FDA-Public Use
  Company Number: CA-BAXALTA-2017BLT001854

PATIENT
  Age: 75 Year
  Sex: Male

DRUGS (1)
  1. OBIZUR [Suspect]
     Active Substance: ANTIHEMOPHILIC FACTOR PORCINE, B-DOMAIN TRUNCATED RECOMBINANT
     Indication: GASTROINTESTINAL HAEMORRHAGE
     Route: 065

REACTIONS (4)
  - Haemorrhage [Fatal]
  - Renal failure [Unknown]
  - Kidney infection [Fatal]
  - Condition aggravated [Unknown]
